FAERS Safety Report 15448388 (Version 1)
Quarter: 2018Q3

REPORT INFORMATION
  Report Type: Spontaneous
  Country: US (occurrence: US)
  Receive Date: 20180926
  Receipt Date: 20180926
  Transmission Date: 20181010
  Serious: Yes (Other)
  Sender: FDA-Public Use
  Company Number: None

PATIENT
  Age: 68 Year
  Sex: Male

DRUGS (10)
  1. AMLODIPINE [Concomitant]
     Active Substance: AMLODIPINE BESYLATE
  2. GABAPENTIN. [Concomitant]
     Active Substance: GABAPENTIN
  3. DIAZEPAM. [Concomitant]
     Active Substance: DIAZEPAM
  4. TESTOSTERONE. [Concomitant]
     Active Substance: TESTOSTERONE
  5. FOSINOPRIL [Concomitant]
     Active Substance: FOSINOPRIL
  6. METHADONE [Concomitant]
     Active Substance: METHADONE HYDROCHLORIDE
  7. HYDROCODONE BITARTRATE AND ACETAMINOPHEN [Concomitant]
     Active Substance: ACETAMINOPHEN\HYDROCODONE BITARTRATE
  8. CLOPIDOGREL [Concomitant]
     Active Substance: CLOPIDOGREL BISULFATE
  9. PANTOPRAZOLE [Concomitant]
     Active Substance: PANTOPRAZOLE
  10. JANUVIA [Suspect]
     Active Substance: SITAGLIPTIN PHOSPHATE
     Indication: DIABETES MELLITUS
     Route: 048
     Dates: start: 20180911, end: 20180911

REACTIONS (7)
  - Flushing [None]
  - Erythema [None]
  - Blood pressure increased [None]
  - Rash [None]
  - Headache [None]
  - Respiratory tract infection [None]
  - Pharyngeal oedema [None]

NARRATIVE: CASE EVENT DATE: 20180911
